FAERS Safety Report 8353060-X (Version None)
Quarter: 2012Q2

REPORT INFORMATION
  Report Type: 
  Country: None (occurrence: None)
  Receive Date: 20120511
  Receipt Date: 20120509
  Transmission Date: 20120825
  Serious: No
  Sender: FDA-Public Use
  Company Number: US-PFIZER INC-2012114356

PATIENT
  Sex: Male

DRUGS (1)
  1. SUTENT [Suspect]
     Indication: NEOPLASM
     Dosage: 50 MG, 1X/DAY
     Route: 048
     Dates: start: 20120425

REACTIONS (2)
  - NEOPLASM [None]
  - DISEASE PROGRESSION [None]
